FAERS Safety Report 10986520 (Version 2)
Quarter: 2015Q2

REPORT INFORMATION
  Report Type: Spontaneous
  Country: US (occurrence: US)
  Receive Date: 20150404
  Receipt Date: 20150525
  Transmission Date: 20150821
  Serious: No
  Sender: FDA-Public Use
  Company Number: US-JNJFOC-20131201066

PATIENT
  Age: 70 Year
  Sex: Female
  Weight: 127.01 kg

DRUGS (2)
  1. IMODIUM MULTI-SYMPTOM RELIEF [Suspect]
     Active Substance: DIMETHICONE\LOPERAMIDE HYDROCHLORIDE
     Route: 048
  2. IMODIUM MULTI-SYMPTOM RELIEF [Suspect]
     Active Substance: DIMETHICONE\LOPERAMIDE HYDROCHLORIDE
     Indication: DIARRHOEA
     Route: 048
     Dates: start: 20131120, end: 20131120

REACTIONS (3)
  - Retching [Recovered/Resolved]
  - Vomiting [Unknown]
  - Dysphagia [Unknown]

NARRATIVE: CASE EVENT DATE: 20131120
